FAERS Safety Report 9239392 (Version 3)
Quarter: 2013Q3

REPORT INFORMATION
  Report Type: Report from Study
  Country: HU (occurrence: HU)
  Receive Date: 20130418
  Receipt Date: 20130722
  Transmission Date: 20140515
  Serious: Yes (Hospitalization)
  Sender: FDA-Public Use
  Company Number: HU-FRI-1000044177

PATIENT
  Age: 7 Year
  Sex: Male
  Weight: 26.6 kg

DRUGS (2)
  1. MEMANTINE (OPEN-LABEL) [Suspect]
     Indication: AUTISM
     Dosage: 3 MG
     Route: 048
     Dates: start: 20130313, end: 20130326
  2. LEVOLAC [Concomitant]
     Indication: CONSTIPATION
     Dosage: 15 ML
     Route: 048
     Dates: start: 20130314

REACTIONS (1)
  - Constipation [Unknown]
